FAERS Safety Report 13304759 (Version 1)
Quarter: 2017Q1

REPORT INFORMATION
  Report Type: Spontaneous
  Country: US (occurrence: US)
  Receive Date: 20170308
  Receipt Date: 20170308
  Transmission Date: 20170428
  Serious: Yes (Other)
  Sender: FDA-Public Use
  Company Number: US-ELI_LILLY_AND_COMPANY-US201607010836

PATIENT
  Sex: Male

DRUGS (5)
  1. CYMBALTA [Suspect]
     Active Substance: DULOXETINE HYDROCHLORIDE
     Indication: PRODUCT USED FOR UNKNOWN INDICATION
     Dosage: 30 MG, BID
     Route: 048
     Dates: start: 20140319, end: 20141222
  2. ATORVASTATIN [Concomitant]
     Active Substance: ATORVASTATIN
     Dosage: 40 MG, BID
     Route: 048
     Dates: start: 20140903, end: 20141222
  3. NEURONTIN [Concomitant]
     Active Substance: GABAPENTIN
     Dosage: 600 MG, TID
     Route: 048
     Dates: start: 20141027
  4. LANTUS [Concomitant]
     Active Substance: INSULIN GLARGINE
     Dosage: 30 IU, UNKNOWN
     Route: 058
     Dates: start: 20141124, end: 20141222
  5. AMOXICILLIN. [Concomitant]
     Active Substance: AMOXICILLIN
     Dosage: 500 MG, TID
     Route: 048
     Dates: start: 20141027, end: 20141222

REACTIONS (24)
  - Seizure [Unknown]
  - Hallucination, auditory [Unknown]
  - Dizziness [Unknown]
  - Agitation [Unknown]
  - Headache [Unknown]
  - Vertigo [Unknown]
  - Insomnia [Unknown]
  - Paraesthesia [Unknown]
  - Irritability [Unknown]
  - Confusional state [Unknown]
  - Hypomania [Unknown]
  - Drug withdrawal syndrome [Unknown]
  - Nausea [Unknown]
  - Hyperhidrosis [Unknown]
  - Suicidal ideation [Unknown]
  - Anxiety [Unknown]
  - Suicide attempt [Unknown]
  - Fatigue [Unknown]
  - Vomiting [Unknown]
  - Diarrhoea [Unknown]
  - Lethargy [Unknown]
  - Tinnitus [Unknown]
  - Depression [Unknown]
  - Affect lability [Unknown]
